FAERS Safety Report 6729529-8 (Version None)
Quarter: 2010Q2

REPORT INFORMATION
  Report Type: 
  Country: None (occurrence: None)
  Receive Date: 20100518
  Receipt Date: 20100510
  Transmission Date: 20101027
  Serious: No
  Sender: FDA-Public Use
  Company Number: US-BIOGENIDEC-2010BI015804

PATIENT
  Age: 29 Year
  Sex: Male

DRUGS (7)
  1. TYSABRI [Suspect]
     Indication: MULTIPLE SCLEROSIS
     Route: 042
     Dates: start: 20100405
  2. NEURONTIN [Concomitant]
     Indication: PARAESTHESIA
  3. MORPHINE [Concomitant]
     Indication: COLITIS ULCERATIVE
  4. MORPHINE [Concomitant]
     Indication: AUTOIMMUNE PANCREATITIS
  5. OXYCODONE [Concomitant]
     Indication: COLITIS ULCERATIVE
  6. OXYCODONE [Concomitant]
     Indication: AUTOIMMUNE PANCREATITIS
  7. PROVIGIL [Concomitant]
     Indication: FATIGUE

REACTIONS (4)
  - ARTHRALGIA [None]
  - MYALGIA [None]
  - NAIL BED BLEEDING [None]
  - SKIN EXFOLIATION [None]
